FAERS Safety Report 12187975 (Version 1)
Quarter: 2016Q1

REPORT INFORMATION
  Report Type: Spontaneous
  Country: FR (occurrence: FR)
  Receive Date: 20160317
  Receipt Date: 20160317
  Transmission Date: 20160526
  Serious: Yes (Congenital Anomaly)
  Sender: FDA-Public Use
  Company Number: FR-JNJFOC-20160309918

PATIENT
  Age: 4 Month
  Sex: Male

DRUGS (1)
  1. REMICADE [Suspect]
     Active Substance: INFLIXIMAB
     Indication: CROHN^S DISEASE
     Route: 064
     Dates: start: 2015, end: 201505

REACTIONS (5)
  - Cardiac disorder [Unknown]
  - Tracheomalacia [Recovered/Resolved with Sequelae]
  - Brain stem syndrome [Unknown]
  - Foetal exposure during pregnancy [Recovered/Resolved]
  - Nephrocalcinosis [Unknown]

NARRATIVE: CASE EVENT DATE: 201510
